FAERS Safety Report 17555204 (Version 1)
Quarter: 2020Q1

REPORT INFORMATION
  Report Type: Spontaneous
  Country: US (occurrence: US)
  Receive Date: 20200318
  Receipt Date: 20200318
  Transmission Date: 20200409
  Serious: Yes (Hospitalization)
  Sender: FDA-Public Use
  Company Number: None

PATIENT
  Age: 55 Year
  Sex: Female

DRUGS (15)
  1. PENTASA [Concomitant]
     Active Substance: MESALAMINE
  2. DICYCLOMINE [Concomitant]
     Active Substance: DICYCLOMINE HYDROCHLORIDE
  3. PAROXETINE. [Concomitant]
     Active Substance: PAROXETINE
  4. ROPINIROLE. [Concomitant]
     Active Substance: ROPINIROLE
  5. ESTRADIOL. [Concomitant]
     Active Substance: ESTRADIOL
  6. HUMIRA [Suspect]
     Active Substance: ADALIMUMAB
     Indication: CROHN^S DISEASE
     Dosage: ?          OTHER FREQUENCY:WEEKLY;?
     Route: 058
     Dates: start: 20180605
  7. OMEPRAZOLE. [Concomitant]
     Active Substance: OMEPRAZOLE
  8. SUCRALFATE. [Concomitant]
     Active Substance: SUCRALFATE
  9. AMLOD/BENAZP [Concomitant]
  10. MESALAMINE. [Concomitant]
     Active Substance: MESALAMINE
  11. PROAIR HFA [Concomitant]
     Active Substance: ALBUTEROL SULFATE
  12. GLIPIZIDE. [Concomitant]
     Active Substance: GLIPIZIDE
  13. LATANOPROST. [Concomitant]
     Active Substance: LATANOPROST
  14. TRIAMCINOLONE [Concomitant]
     Active Substance: TRIAMCINOLONE
  15. HYDROCO/APAP [Concomitant]
     Active Substance: ACETAMINOPHEN\HYDROCODONE

REACTIONS (5)
  - Diarrhoea [None]
  - Weight decreased [None]
  - Chronic obstructive pulmonary disease [None]
  - Hernia [None]
  - Condition aggravated [None]

NARRATIVE: CASE EVENT DATE: 20200304
